FAERS Safety Report 24075413 (Version 1)
Quarter: 2024Q3

REPORT INFORMATION
  Report Type: Spontaneous
  Country: CH (occurrence: CH)
  Receive Date: 20240710
  Receipt Date: 20240710
  Transmission Date: 20241017
  Serious: Yes (Other)
  Sender: Vantive US Healthcare
  Company Number: CH-BAXTER-2020BAX003707

PATIENT
  Age: 74 Year
  Sex: Male

DRUGS (7)
  1. EXTRANEAL [Suspect]
     Active Substance: CALCIUM CHLORIDE\ICODEXTRIN\MAGNESIUM CHLORIDE\SODIUM CHLORIDE\SODIUM LACTATE
     Indication: End stage renal disease
     Dosage: 2L DWELL, OVERNIGHT
     Route: 033
  2. DEXTROSE [Concomitant]
     Active Substance: DEXTROSE\DEXTROSE MONOHYDRATE
     Dosage: 3 DAY DWELL
     Route: 065
  3. DEXTROSE [Concomitant]
     Active Substance: DEXTROSE\DEXTROSE MONOHYDRATE
     Dosage: SWITCHED TO A 4TH DWELL, EVERY OTHER DAY
     Route: 065
  4. TORSEMIDE [Concomitant]
     Active Substance: TORSEMIDE
     Dosage: BETWEEN 30 AND 100 MG PER DAY
     Route: 065
  5. CEFAZOLIN [Concomitant]
     Active Substance: CEFAZOLIN
     Indication: Evidence based treatment
     Dosage: LOADING DOSE 1000 MG, 250 MG 4 TIMES DAILY
     Route: 033
  6. GENTAMICIN [Concomitant]
     Active Substance: GENTAMICIN
     Indication: Evidence based treatment
     Dosage: 50 MG, ONCE DAILY
     Route: 033
  7. VANCOMYCIN [Concomitant]
     Active Substance: VANCOMYCIN
     Indication: Evidence based treatment
     Dosage: 2 GM AT DAY ONE AND DAY FOUR
     Route: 033

REACTIONS (4)
  - Pancreatitis acute [Unknown]
  - Decreased appetite [Unknown]
  - Malaise [Unknown]
  - Abdominal pain [Unknown]
